FAERS Safety Report 8417327-9 (Version None)
Quarter: 2012Q2

REPORT INFORMATION
  Report Type: 
  Country: None (occurrence: None)
  Receive Date: 20120606
  Receipt Date: 20120604
  Transmission Date: 20120825
  Serious: No
  Sender: FDA-Public Use
  Company Number: US-BAYER-2012-055844

PATIENT
  Age: 71 Year
  Sex: Male

DRUGS (1)
  1. LEVITRA [Suspect]
     Dosage: 10MG WEEKLY
     Dates: start: 20120401, end: 20120601

REACTIONS (1)
  - EPISTAXIS [None]
